FAERS Safety Report 9910442 (Version 1)
Quarter: 2014Q1

REPORT INFORMATION
  Report Type: Spontaneous
  Country: GR (occurrence: GR)
  Receive Date: 20140219
  Receipt Date: 20140219
  Transmission Date: 20141002
  Serious: Yes (Other)
  Sender: FDA-Public Use
  Company Number: GR-TAKEDA-2014TUS001148

PATIENT
  Sex: 0

DRUGS (1)
  1. ADENURIC [Suspect]
     Dosage: 80 MG, QD
     Dates: start: 201401, end: 201401

REACTIONS (5)
  - Walking disability [Recovered/Resolved]
  - Musculoskeletal disorder [Recovered/Resolved]
  - Joint swelling [Recovered/Resolved]
  - Erythema [Recovered/Resolved]
  - Arthralgia [Recovered/Resolved]
